FAERS Safety Report 7307155-X (Version None)
Quarter: 2011Q1

REPORT INFORMATION
  Report Type: 
  Country: None (occurrence: None)
  Receive Date: 20110223
  Receipt Date: 20110211
  Transmission Date: 20110831
  Serious: Yes (Hospitalization)
  Sender: FDA-Public Use
  Company Number: FR-JNJFOC-20110205065

PATIENT
  Age: 80 Year
  Sex: Female

DRUGS (6)
  1. GOLIMUMAB [Suspect]
     Indication: RHEUMATOID ARTHRITIS
     Route: 058
  2. METHOTREXATE [Concomitant]
     Indication: RHEUMATOID ARTHRITIS
     Route: 048
  3. ATORVASTATIN [Concomitant]
     Indication: DYSLIPIDAEMIA
     Route: 048
  4. SPIRONOLACTONE [Concomitant]
     Indication: HYPERTENSION
     Route: 048
  5. SPECIAFOLDINE [Concomitant]
     Indication: RHEUMATOID ARTHRITIS
     Route: 048
  6. PREDNISONE [Concomitant]
     Indication: RHEUMATOID ARTHRITIS
     Route: 048

REACTIONS (2)
  - HERPES ZOSTER [None]
  - PYELONEPHRITIS [None]
